FAERS Safety Report 6637645-4 (Version None)
Quarter: 2010Q1

REPORT INFORMATION
  Report Type: 
  Country: None (occurrence: None)
  Receive Date: 20100301
  Receipt Date: 20091026
  Transmission Date: 20100710
  Serious: Yes (Hospitalization)
  Sender: FDA-Public Use
  Company Number: RB-23220-2009

PATIENT
  Age: 26 Year
  Sex: Male

DRUGS (2)
  1. SUBOXONE [Suspect]
     Indication: DRUG DEPENDENCE
     Dosage: 8 MG BID SUBLINGUAL
     Route: 060
     Dates: start: 20090401, end: 20091021
  2. SOMA [Suspect]
     Indication: DRUG USE FOR UNKNOWN INDICATION
     Dosage: UNKNOWN DOSING DETAILS ORAL
     Route: 048
     Dates: start: 20091021, end: 20091021

REACTIONS (1)
  - DRUG WITHDRAWAL SYNDROME [None]
